FAERS Safety Report 17406943 (Version 1)
Quarter: 2020Q1

REPORT INFORMATION
  Report Type: Spontaneous
  Country: DE (occurrence: DE)
  Receive Date: 20200212
  Receipt Date: 20200212
  Transmission Date: 20200409
  Serious: Yes (Other)
  Sender: FDA-Public Use
  Company Number: DE-TEVA-2020-DE-1182877

PATIENT
  Age: 16 Year
  Sex: Female

DRUGS (2)
  1. ENALAPRIL [Concomitant]
     Active Substance: ENALAPRIL
  2. FLUOXETIN-RATIOPHARM 20 MG TABLETTEN [Suspect]
     Active Substance: FLUOXETINE HYDROCHLORIDE
     Indication: DEPRESSION
     Dosage: 40 MILLIGRAM DAILY; 2-0-0
     Route: 048
     Dates: start: 2018

REACTIONS (1)
  - Hypertension [Not Recovered/Not Resolved]
